FAERS Safety Report 15150626 (Version 1)
Quarter: 2018Q3

REPORT INFORMATION
  Report Type: Spontaneous
  Country: US (occurrence: US)
  Receive Date: 20180716
  Receipt Date: 20180716
  Transmission Date: 20181010
  Serious: No
  Sender: FDA-Public Use
  Company Number: US-TELIGENT, INC-IGIL20180387

PATIENT
  Sex: Female

DRUGS (1)
  1. ZANTAC [Suspect]
     Active Substance: RANITIDINE HYDROCHLORIDE
     Indication: URTICARIA CHRONIC
     Dosage: UNKNOWN
     Route: 065

REACTIONS (1)
  - Drug ineffective for unapproved indication [Unknown]
